FAERS Safety Report 16303086 (Version 3)
Quarter: 2020Q4

REPORT INFORMATION
  Report Type: Spontaneous
  Country: US (occurrence: US)
  Receive Date: 20190513
  Receipt Date: 20201216
  Transmission Date: 20210113
  Serious: Yes (Hospitalization, Other)
  Sender: FDA-Public Use
  Company Number: US-ASTRAZENECA-2019SE65472

PATIENT
  Age: 19739 Day
  Sex: Male
  Weight: 108 kg

DRUGS (70)
  1. CALCITRIOL. [Concomitant]
     Active Substance: CALCITRIOL
     Indication: HYPOCALCAEMIA
  2. VITAMIN D3 [Concomitant]
     Active Substance: CHOLECALCIFEROL
     Indication: PRODUCT PRESCRIBING ERROR
     Dates: start: 2014
  3. LISINOPRIL. [Concomitant]
     Active Substance: LISINOPRIL
  4. METOPROLOL TARTRATE. [Concomitant]
     Active Substance: METOPROLOL TARTRATE
  5. REGLAN [Concomitant]
     Active Substance: METOCLOPRAMIDE HYDROCHLORIDE
  6. GLUCOTROL [Concomitant]
     Active Substance: GLIPIZIDE
  7. ATROVENT [Concomitant]
     Active Substance: IPRATROPIUM BROMIDE
  8. NEXIUM [Suspect]
     Active Substance: ESOMEPRAZOLE MAGNESIUM
     Indication: GASTROOESOPHAGEAL REFLUX DISEASE
     Route: 048
     Dates: start: 2012, end: 2018
  9. PRILOSEC OTC [Suspect]
     Active Substance: OMEPRAZOLE MAGNESIUM
     Indication: GASTROOESOPHAGEAL REFLUX DISEASE
     Route: 048
     Dates: start: 2012, end: 20140502
  10. FISH OIL [Concomitant]
     Active Substance: FISH OIL
     Indication: CARDIOVASCULAR DISORDER
  11. PEPTO-BISMOL [Concomitant]
     Active Substance: BISMUTH SUBSALICYLATE
     Dates: start: 2010
  12. ZOLOFT [Concomitant]
     Active Substance: SERTRALINE HYDROCHLORIDE
  13. AMBIEN [Concomitant]
     Active Substance: ZOLPIDEM TARTRATE
  14. LOVASTATIN. [Concomitant]
     Active Substance: LOVASTATIN
  15. SPIRIVA RESPIMAT [Concomitant]
     Active Substance: TIOTROPIUM BROMIDE
  16. ONDANSETRON [Concomitant]
     Active Substance: ONDANSETRON
  17. LASIX [Concomitant]
     Active Substance: FUROSEMIDE
  18. MELATONIN [Concomitant]
     Active Substance: MELATONIN
  19. CLONAZEPAM. [Concomitant]
     Active Substance: CLONAZEPAM
  20. METFORMIN HCL [Concomitant]
     Active Substance: METFORMIN HYDROCHLORIDE
  21. LEXAPRO [Concomitant]
     Active Substance: ESCITALOPRAM OXALATE
  22. OXYCODONE [Concomitant]
     Active Substance: OXYCODONE
  23. PRILOSEC [Suspect]
     Active Substance: OMEPRAZOLE MAGNESIUM
     Indication: GASTROOESOPHAGEAL REFLUX DISEASE
     Dosage: GENERIC
     Route: 048
     Dates: start: 2012
  24. CINACALCET. [Concomitant]
     Active Substance: CINACALCET
     Indication: HYPERCALCAEMIA
  25. GENTAMICIN. [Concomitant]
     Active Substance: GENTAMICIN
     Indication: INFECTION
  26. NOVOLOG [Concomitant]
     Active Substance: INSULIN ASPART
  27. FLONASE [Concomitant]
     Active Substance: FLUTICASONE PROPIONATE
  28. BUMETANIDE. [Concomitant]
     Active Substance: BUMETANIDE
  29. LOSARTAN POTASSIUM. [Concomitant]
     Active Substance: LOSARTAN POTASSIUM
  30. PRAVASTATIN SODIUM. [Concomitant]
     Active Substance: PRAVASTATIN SODIUM
  31. AUGMENTIN [Concomitant]
     Active Substance: AMOXICILLIN\CLAVULANATE POTASSIUM
  32. MAGNESIUM OXIDE. [Concomitant]
     Active Substance: MAGNESIUM OXIDE
  33. METOPROLOL. [Concomitant]
     Active Substance: METOPROLOL
  34. FERROUS SULFATE. [Concomitant]
     Active Substance: FERROUS SULFATE
  35. HYDROXYZINE [Concomitant]
     Active Substance: HYDROXYZINE HYDROCHLORIDE
  36. PREVACID 24 HR [Suspect]
     Active Substance: LANSOPRAZOLE
     Indication: GASTROOESOPHAGEAL REFLUX DISEASE
     Route: 065
     Dates: start: 2012, end: 2018
  37. AMLODIPINE BESYLATE. [Concomitant]
     Active Substance: AMLODIPINE BESYLATE
  38. TRAZODONE HYDROCHLORIDE. [Concomitant]
     Active Substance: TRAZODONE HYDROCHLORIDE
  39. RANITIDINE HCL [Concomitant]
     Active Substance: RANITIDINE HYDROCHLORIDE
  40. DICLOFENAC SODIUM. [Concomitant]
     Active Substance: DICLOFENAC SODIUM
  41. ZOCOR [Concomitant]
     Active Substance: SIMVASTATIN
  42. PHOSLO [Concomitant]
     Active Substance: CALCIUM ACETATE
  43. PRILOSEC [Suspect]
     Active Substance: OMEPRAZOLE MAGNESIUM
     Indication: GASTROOESOPHAGEAL REFLUX DISEASE
     Route: 048
     Dates: start: 201201, end: 201201
  44. HYDROXYZINE HCL [Concomitant]
     Active Substance: HYDROXYZINE HYDROCHLORIDE
  45. ACIPHEX [Concomitant]
     Active Substance: RABEPRAZOLE SODIUM
  46. IPRATROPIUM-ALBUTEROL [Concomitant]
     Active Substance: ALBUTEROL\IPRATROPIUM
  47. HUMALOG [Concomitant]
     Active Substance: INSULIN LISPRO
  48. PREVACID [Suspect]
     Active Substance: LANSOPRAZOLE
     Route: 065
     Dates: start: 201201, end: 201201
  49. TORSEMIDE. [Concomitant]
     Active Substance: TORSEMIDE
     Indication: OEDEMA
  50. AMITRIPTYLINE [Concomitant]
     Active Substance: AMITRIPTYLINE
  51. CODEINE [Concomitant]
     Active Substance: CODEINE
  52. PLAVIX [Concomitant]
     Active Substance: CLOPIDOGREL BISULFATE
  53. VENTOLIN HFA [Concomitant]
     Active Substance: ALBUTEROL SULFATE
  54. VENLAFAXINE [Concomitant]
     Active Substance: VENLAFAXINE HYDROCHLORIDE
  55. POTASSIUM CHLORIDE. [Concomitant]
     Active Substance: POTASSIUM CHLORIDE
  56. SENSIPAR [Concomitant]
     Active Substance: CINACALCET HYDROCHLORIDE
  57. DEXTROSE. [Concomitant]
     Active Substance: DEXTROSE
  58. ALUMINIUM OXIDE [Concomitant]
  59. ASPIRIN. [Concomitant]
     Active Substance: ASPIRIN
     Indication: BLOOD VISCOSITY ABNORMAL
     Dates: start: 2014
  60. IRON [Concomitant]
     Active Substance: IRON
     Indication: PRODUCT PRESCRIBING ERROR
     Dates: start: 2014
  61. LANTUS [Concomitant]
     Active Substance: INSULIN GLARGINE
  62. SINGULAIR [Concomitant]
     Active Substance: MONTELUKAST SODIUM
  63. DOXYCYCLINE HYCLATE. [Concomitant]
     Active Substance: DOXYCYCLINE HYCLATE
  64. ANDROGEL [Concomitant]
     Active Substance: TESTOSTERONE
  65. FERRITIN [Concomitant]
     Active Substance: FERRITIN
  66. NEXIUM [Suspect]
     Active Substance: ESOMEPRAZOLE MAGNESIUM
     Indication: GASTROOESOPHAGEAL REFLUX DISEASE
     Route: 048
     Dates: start: 201201, end: 201201
  67. TALWIN [Concomitant]
     Active Substance: PENTAZOCINE LACTATE
  68. GLIMEPIRIDE. [Concomitant]
     Active Substance: GLIMEPIRIDE
  69. LEVEMIR [Concomitant]
     Active Substance: INSULIN DETEMIR
  70. LEVAQUIN [Concomitant]
     Active Substance: LEVOFLOXACIN

REACTIONS (7)
  - Gastrooesophageal reflux disease [Not Recovered/Not Resolved]
  - End stage renal disease [Not Recovered/Not Resolved]
  - Renal failure [Unknown]
  - Chronic kidney disease [Not Recovered/Not Resolved]
  - Nephrogenic anaemia [Unknown]
  - Hyperparathyroidism secondary [Unknown]
  - Acute kidney injury [Unknown]

NARRATIVE: CASE EVENT DATE: 20130520
